FAERS Safety Report 12765966 (Version 1)
Quarter: 2016Q3

REPORT INFORMATION
  Report Type: Spontaneous
  Country: US (occurrence: US)
  Receive Date: 20160920
  Receipt Date: 20160920
  Transmission Date: 20161109
  Serious: Yes (Disabling)
  Sender: FDA-Public Use
  Company Number: None

PATIENT
  Age: 31 Year
  Sex: Male
  Weight: 126 kg

DRUGS (3)
  1. CONCERTA [Concomitant]
     Active Substance: METHYLPHENIDATE HYDROCHLORIDE
  2. HYOSCYAMINE SUBLINGUAL 0.125 [Suspect]
     Active Substance: HYOSCYAMINE
     Indication: IRRITABLE BOWEL SYNDROME
     Route: 060
     Dates: start: 20160801, end: 20160920
  3. METHYLPHENIDATE. [Concomitant]
     Active Substance: METHYLPHENIDATE

REACTIONS (11)
  - Erythema [None]
  - Nervousness [None]
  - Irritable bowel syndrome [None]
  - Flushing [None]
  - Feeling hot [None]
  - Pyrexia [None]
  - Agitation [None]
  - Panic attack [None]
  - Nausea [None]
  - Vomiting [None]
  - Dizziness [None]

NARRATIVE: CASE EVENT DATE: 20160919
